FAERS Safety Report 21042173 (Version 1)
Quarter: 2022Q3

REPORT INFORMATION
  Report Type: Report from Study
  Country: CA (occurrence: CA)
  Receive Date: 20220705
  Receipt Date: 20220705
  Transmission Date: 20221026
  Serious: Yes (Hospitalization, Other)
  Sender: FDA-Public Use
  Company Number: CA-TAKEDA-2022TUS030440

PATIENT
  Age: 58 Year
  Sex: Female

DRUGS (1)
  1. VEDOLIZUMAB [Suspect]
     Active Substance: VEDOLIZUMAB
     Indication: Crohn^s disease
     Dosage: 300 MILLIGRAM
     Route: 042
     Dates: start: 20211201

REACTIONS (5)
  - Ileus paralytic [Unknown]
  - Intestinal anastomosis [Unknown]
  - Abdominal pain [Unknown]
  - Constipation [Unknown]
  - Diarrhoea [Unknown]
